FAERS Safety Report 19930263 (Version 1)
Quarter: 2021Q4

REPORT INFORMATION
  Report Type: Report from Study
  Country: CA (occurrence: CA)
  Receive Date: 20211007
  Receipt Date: 20211007
  Transmission Date: 20220303
  Serious: Yes (Other)
  Sender: FDA-Public Use
  Company Number: CA-UCBSA-2021046578

PATIENT
  Sex: Female

DRUGS (2)
  1. BRIVARACETAM [Suspect]
     Active Substance: BRIVARACETAM
     Indication: Partial seizures
     Dosage: LOWER DOSE
  2. BRIVARACETAM [Suspect]
     Active Substance: BRIVARACETAM
     Dosage: 2 TABS OF 50MG IN THE MORNING AND 1 TAB OF 50MG IN THE EVENING

REACTIONS (2)
  - Seizure [Recovered/Resolved]
  - Off label use [Unknown]
